FAERS Safety Report 8001112 (Version 2)
Quarter: 2015Q2

REPORT INFORMATION
  Report Type: Spontaneous
  Country: US (occurrence: US)
  Receive Date: 20110621
  Receipt Date: 20150625
  Transmission Date: 20150821
  Serious: Yes (Hospitalization, Other)
  Sender: FDA-Public Use
  Company Number: US-ASTRAZENECA-2011SE07597

PATIENT
  Age: 77 Year
  Sex: Female
  Weight: 55.8 kg

DRUGS (7)
  1. NITROGLYCERIN. [Concomitant]
     Active Substance: NITROGLYCERIN
  2. DILANTIN [Concomitant]
     Active Substance: PHENYTOIN
  3. ZOLOFT [Concomitant]
     Active Substance: SERTRALINE HYDROCHLORIDE
  4. MULTILPLE MEDICATIONS [Concomitant]
  5. ARIMIDEX [Suspect]
     Active Substance: ANASTROZOLE
     Indication: BREAST CANCER
     Route: 048
     Dates: start: 2015, end: 201506
  6. RHINOCORT AQUA [Suspect]
     Active Substance: BUDESONIDE
     Route: 045
  7. NEXIUM [Suspect]
     Active Substance: ESOMEPRAZOLE MAGNESIUM
     Route: 048

REACTIONS (9)
  - Weight decreased [Unknown]
  - Condition aggravated [Unknown]
  - Gastroenteritis viral [Unknown]
  - Chest discomfort [Unknown]
  - Feeding disorder [Unknown]
  - Vomiting [Unknown]
  - Memory impairment [Unknown]
  - Malaise [Unknown]
  - Mental impairment [Unknown]

NARRATIVE: CASE EVENT DATE: 2015
